FAERS Safety Report 24765418 (Version 1)
Quarter: 2024Q4

REPORT INFORMATION
  Report Type: Spontaneous
  Country: IT (occurrence: IT)
  Receive Date: 20241223
  Receipt Date: 20241223
  Transmission Date: 20250114
  Serious: Yes (Life-Threatening)
  Sender: ACCORD
  Company Number: None

PATIENT
  Age: 60 Year
  Sex: Male
  Weight: 99 kg

DRUGS (1)
  1. OXALIPLATIN [Suspect]
     Active Substance: OXALIPLATIN
     Indication: Gastrointestinal carcinoma
     Dosage: THERAPY RESUMED AFTER 3 WEEKS
     Dates: start: 20240702, end: 20240702

REACTIONS (3)
  - Dyspepsia [Recovered/Resolved]
  - Loss of consciousness [Recovered/Resolved]
  - Cardiac arrest [Recovered/Resolved]

NARRATIVE: CASE EVENT DATE: 20240702
